FAERS Safety Report 6647662-6 (Version None)
Quarter: 2010Q1

REPORT INFORMATION
  Report Type: 
  Country: None (occurrence: None)
  Receive Date: 20100323
  Receipt Date: 20100323
  Transmission Date: 20100710
  Serious: Yes (Hospitalization)
  Sender: FDA-Public Use
  Company Number: None

PATIENT
  Sex: Female
  Weight: 43.2 kg

DRUGS (14)
  1. OXCARBAZEPINE [Suspect]
     Indication: CONVULSION
     Dosage: 600MG TID PO
     Route: 048
     Dates: start: 20040428
  2. CLONAZEPAM [Concomitant]
  3. RISPERIDONE [Concomitant]
  4. DIASTAT [Concomitant]
  5. ASPIRIN [Concomitant]
  6. CALCIUM W VIT D-2 [Concomitant]
  7. CHROMIUM PICOLINATE [Concomitant]
  8. DOCUSATE [Concomitant]
  9. FORTICAL [Concomitant]
  10. MELATONIN [Concomitant]
  11. PRILOSEC [Concomitant]
  12. THERA M PLUS [Concomitant]
  13. ACETAMINOPHEN [Concomitant]
  14. ALLERGY INJECTIONS [Concomitant]

REACTIONS (3)
  - BLOOD SODIUM DECREASED [None]
  - MENTAL STATUS CHANGES [None]
  - VOMITING [None]
